FAERS Safety Report 4523222-8 (Version None)
Quarter: 2004Q4

REPORT INFORMATION
  Report Type: 
  Country: None (occurrence: None)
  Receive Date: 20041208
  Receipt Date: 20041129
  Transmission Date: 20050328
  Serious: Yes (Death, Other)
  Sender: FDA-Public Use
  Company Number: 2004-09-1592

PATIENT
  Age: 70 Year
  Sex: Male
  Weight: 52 kg

DRUGS (8)
  1. REBETOL [Suspect]
     Indication: HEPATITIS C
     Dosage: 600 MG ORAL
     Route: 048
     Dates: start: 20040416, end: 20040522
  2. INTRON A [Suspect]
     Indication: HEPATITIS C
     Dosage: 6 MU QD-TIW* INTRAMUSCUL
     Route: 030
     Dates: start: 20040416, end: 20040428
  3. INTRON A [Suspect]
     Indication: HEPATITIS C
     Dosage: 6 MU QD-TIW* INTRAMUSCUL
     Route: 030
     Dates: start: 20040416, end: 20040522
  4. INTRON A [Suspect]
     Indication: HEPATITIS C
     Dosage: 6 MU QD-TIW* INTRAMUSCUL
     Route: 030
     Dates: start: 20040506, end: 20040522
  5. STRONG NEO-MINOPHAGEN C INJECTABLE SOLUTION 40 ML [Concomitant]
  6. SOLDEM INJECTABLE SOLUTION [Concomitant]
  7. HALCION TABLETS 0.25 MG [Concomitant]
  8. PERSANTIN INJECTABLE SOLUTION 200 MG [Concomitant]

REACTIONS (7)
  - BLOOD PRESSURE INCREASED [None]
  - CARDIAC FAILURE [None]
  - CEREBRAL INFARCTION [None]
  - DISEASE RECURRENCE [None]
  - EPILEPSY [None]
  - MONOPLEGIA [None]
  - PERIPHERAL COLDNESS [None]
